FAERS Safety Report 9781776 (Version 1)
Quarter: 2013Q4

REPORT INFORMATION
  Report Type: Spontaneous
  Country: US (occurrence: US)
  Receive Date: 20131225
  Receipt Date: 20131225
  Transmission Date: 20140711
  Serious: Yes (Death, Other)
  Sender: FDA-Public Use
  Company Number: US-ROCHE-1319462

PATIENT
  Age: 72 Year
  Sex: Female

DRUGS (3)
  1. PERJETA [Suspect]
     Indication: BREAST CANCER METASTATIC
     Dosage: LOADING DOSE
     Route: 041
     Dates: start: 20131205
  2. HERCEPTIN [Suspect]
     Indication: BREAST CANCER METASTATIC
     Dosage: LOADING DOSE
     Route: 041
     Dates: start: 20131205
  3. TAXOTERE [Suspect]
     Indication: BREAST CANCER METASTATIC
     Route: 041
     Dates: start: 20131205

REACTIONS (6)
  - Cardiac arrest [Fatal]
  - Chest discomfort [Not Recovered/Not Resolved]
  - Blood potassium increased [Unknown]
  - Blood bilirubin abnormal [Unknown]
  - International normalised ratio increased [Unknown]
  - Metastases to liver [Unknown]
